FAERS Safety Report 12204847 (Version 1)
Quarter: 2016Q1

REPORT INFORMATION
  Report Type: Spontaneous
  Country: US (occurrence: US)
  Receive Date: 20160323
  Receipt Date: 20160323
  Transmission Date: 20160526
  Serious: No
  Sender: FDA-Public Use
  Company Number: US-SHIRE-US201602983

PATIENT

DRUGS (1)
  1. FIRAZYR [Suspect]
     Active Substance: ICATIBANT ACETATE
     Indication: EXPOSURE DURING BREAST FEEDING
     Dosage: 30 MG, AS REQ^D
     Route: 063

REACTIONS (2)
  - No adverse event [Unknown]
  - Exposure during breast feeding [Unknown]
